FAERS Safety Report 5832128-3 (Version None)
Quarter: 2008Q3

REPORT INFORMATION
  Report Type: 
  Country: None (occurrence: None)
  Receive Date: 20080804
  Receipt Date: 20080729
  Transmission Date: 20090109
  Serious: Yes (Other)
  Sender: FDA-Public Use
  Company Number: JP-AVENTIS-200811836JP

PATIENT
  Age: 89 Year
  Sex: Female

DRUGS (8)
  1. LANTUS [Suspect]
     Dosage: DOSE: 4 UNITS
     Route: 058
     Dates: start: 20080611, end: 20080707
  2. LANTUS [Suspect]
     Dosage: DOSE: 6 UNITS
     Route: 058
     Dates: start: 20080708
  3. OPTICLIK (INSULIN INJECTION PEN) [Suspect]
     Dates: start: 20080611
  4. LASIX [Concomitant]
     Route: 048
  5. ALLOPURINOL [Concomitant]
     Route: 048
  6. AMARYL [Concomitant]
     Indication: DIABETES MELLITUS
     Dosage: DOSE: 2 MG/MORNING, 1 MG/EVENING
     Route: 048
  7. LIVALO [Concomitant]
     Route: 048
  8. RHYTHMY [Concomitant]
     Indication: INSOMNIA
     Route: 048

REACTIONS (2)
  - HALLUCINATION [None]
  - PAIN IN EXTREMITY [None]
